FAERS Safety Report 8935545 (Version 1)
Quarter: 2012Q4

REPORT INFORMATION
  Report Type: Spontaneous
  Country: US (occurrence: None)
  Receive Date: 20121128
  Receipt Date: 20121128
  Transmission Date: 20130627
  Serious: Yes (Life-Threatening, Hospitalization)
  Sender: FDA-Public Use
  Company Number: None

PATIENT
  Age: 77 Year
  Sex: Male
  Weight: 82.3 kg

DRUGS (2)
  1. CLOPIDOGREL [Suspect]
     Indication: CARDIOVASCULAR DISORDER
     Route: 048
     Dates: start: 20111107
  2. ASPIRIN [Suspect]
     Indication: CARDIOVASCULAR DISORDER
     Route: 048
     Dates: start: 20100330

REACTIONS (12)
  - Nausea [None]
  - Vomiting [None]
  - Haematemesis [None]
  - Diarrhoea [None]
  - Hypophagia [None]
  - Chest pain [None]
  - Gastroenteritis viral [None]
  - Gastrointestinal haemorrhage [None]
  - Dehydration [None]
  - Hypertension [None]
  - Arteriosclerosis coronary artery [None]
  - Renal failure [None]
